FAERS Safety Report 9911717 (Version 2)
Quarter: 2014Q1

REPORT INFORMATION
  Report Type: Spontaneous
  Country: US (occurrence: US)
  Receive Date: 20140219
  Receipt Date: 20140224
  Transmission Date: 20141002
  Serious: Yes (Hospitalization)
  Sender: FDA-Public Use
  Company Number: CHPA2014US002599

PATIENT
  Age: 86 Year
  Sex: Female

DRUGS (2)
  1. VOLTAREN GEL [Suspect]
     Indication: ARTHRITIS
     Dosage: A LITTLE BUBBLE, TID
     Route: 061
     Dates: start: 2013
  2. CELEBREX [Concomitant]
     Indication: PAIN
     Route: 065

REACTIONS (7)
  - Fall [Recovered/Resolved]
  - Hip fracture [Recovered/Resolved]
  - Arthralgia [Recovered/Resolved]
  - Gait disturbance [Recovered/Resolved]
  - Arthropathy [Recovered/Resolved]
  - Wrong technique in drug usage process [Unknown]
  - Underdose [Unknown]
